FAERS Safety Report 8837532 (Version 2)
Quarter: 2012Q4

REPORT INFORMATION
  Report Type: 
  Country: US (occurrence: US)
  Receive Date: 20121012
  Receipt Date: 20121116
  Transmission Date: 20130627
  Serious: No
  Sender: FDA-Public Use
  Company Number: US-PFIZER INC-2012250865

PATIENT
  Age: 59 Year
  Sex: Female
  Weight: 73.47 kg

DRUGS (6)
  1. RELPAX [Suspect]
     Indication: MIGRAINE
     Dosage: 40 mg, as needed
     Route: 048
     Dates: end: 201209
  2. LASIX [Concomitant]
     Dosage: UNK
  3. OXYGEN [Concomitant]
     Dosage: UNK, twenty four hours a day
  4. LEVOTHYROXINE [Concomitant]
     Dosage: UNK
  5. TALWIN [Concomitant]
     Dosage: UNK
  6. NEURONTIN [Concomitant]
     Dosage: UNK

REACTIONS (2)
  - Migraine [Unknown]
  - Headache [Unknown]
